FAERS Safety Report 5839535-3 (Version None)
Quarter: 2008Q3

REPORT INFORMATION
  Report Type: 
  Country: None (occurrence: None)
  Receive Date: 20080807
  Receipt Date: 20080728
  Transmission Date: 20090109
  Serious: Yes (Hospitalization, Other)
  Sender: FDA-Public Use
  Company Number: 15285

PATIENT
  Age: 76 Year
  Sex: Female
  Weight: 89.8122 kg

DRUGS (8)
  1. MORPHINE SULFATE [Suspect]
     Indication: BACK PAIN
     Dosage: 60 MG TID ORALLY
     Route: 048
     Dates: start: 19990101, end: 20080701
  2. LANTUS [Concomitant]
  3. ASPIRIN [Concomitant]
  4. METFORMIN HCL [Concomitant]
  5. LYRICA [Concomitant]
  6. LOVASTATIN [Concomitant]
  7. DOXEPIN HCL [Concomitant]
  8. TRIAMTERENE [Concomitant]

REACTIONS (7)
  - FALL [None]
  - HYPERSOMNIA [None]
  - JOINT SWELLING [None]
  - LETHARGY [None]
  - OESOPHAGEAL OBSTRUCTION [None]
  - PHARMACEUTICAL PRODUCT COMPLAINT [None]
  - URINARY TRACT INFECTION [None]
